FAERS Safety Report 17516462 (Version 2)
Quarter: 2020Q1

REPORT INFORMATION
  Report Type: Spontaneous
  Country: US (occurrence: US)
  Receive Date: 20200309
  Receipt Date: 20200318
  Transmission Date: 20200409
  Serious: No
  Sender: FDA-Public Use
  Company Number: US-PFIZER INC-2020100465

PATIENT
  Age: 56 Year
  Sex: Female

DRUGS (1)
  1. XELJANZ XR [Suspect]
     Active Substance: TOFACITINIB CITRATE
     Indication: POLYARTHRITIS
     Dosage: 11 MG, DAILY
     Route: 048

REACTIONS (5)
  - Depression [Unknown]
  - Off label use [Unknown]
  - Product use in unapproved indication [Unknown]
  - Pain [Not Recovered/Not Resolved]
  - Sensitivity to weather change [Not Recovered/Not Resolved]
